FAERS Safety Report 8154738-3 (Version None)
Quarter: 2012Q1

REPORT INFORMATION
  Report Type: 
  Country: None (occurrence: None)
  Receive Date: 20120221
  Receipt Date: 20120208
  Transmission Date: 20120608
  Serious: Yes (Hospitalization)
  Sender: FDA-Public Use
  Company Number: PHHY2012DE006013

PATIENT
  Age: 46 Year
  Sex: Female

DRUGS (8)
  1. RAMIPRIL [Concomitant]
     Indication: HYPERTENSION
     Dosage: 2.5 MG,
     Route: 048
     Dates: start: 20111201
  2. TASIGNA [Suspect]
     Indication: CHRONIC MYELOID LEUKAEMIA
     Dosage: 800 MG/DAY
     Route: 048
     Dates: start: 20110801, end: 20111101
  3. CITALOPRAM HYDROBROMIDE [Concomitant]
     Indication: DEPRESSION
     Dosage: 100 MG,
     Route: 048
  4. PREGABALIN [Concomitant]
     Indication: PAIN
     Dosage: 225 MG, UNK
     Route: 048
     Dates: start: 20111201
  5. HYDROMORPHONE HCL [Concomitant]
     Indication: PAIN
     Dosage: 24 MG, UNK
     Route: 048
     Dates: start: 20111201
  6. SORAFENIB [Concomitant]
     Dosage: UNK UKN, UNK
     Dates: start: 20110801
  7. METAMIZOLE [Concomitant]
     Indication: PAIN
     Dosage: 120 DRP, UNK
     Route: 048
     Dates: start: 20111201
  8. ASPIRIN [Concomitant]
     Indication: NECROSIS
     Dosage: 100 MG,
     Dates: start: 20111201

REACTIONS (5)
  - OEDEMA PERIPHERAL [None]
  - BLISTER [None]
  - NECROSIS [None]
  - PAIN IN EXTREMITY [None]
  - SKIN DISCOLOURATION [None]
